FAERS Safety Report 23111892 (Version 3)
Quarter: 2025Q1

REPORT INFORMATION
  Report Type: Report from Study
  Country: PH (occurrence: PH)
  Receive Date: 20231026
  Receipt Date: 20250314
  Transmission Date: 20250409
  Serious: Yes (Death, Hospitalization)
  Sender: OTSUKA
  Company Number: PH-OTSUKA-2023_027454

PATIENT
  Sex: Female

DRUGS (2)
  1. TOLVAPTAN [Suspect]
     Active Substance: TOLVAPTAN
     Indication: Oedema
     Route: 048
     Dates: start: 202209
  2. TOLVAPTAN [Suspect]
     Active Substance: TOLVAPTAN
     Indication: Renal disorder
     Dosage: 0.5 DF, TIW (15 MG 1/2 TABLET EVERY MONDAY, WEDNESDAY, AND FRIDAY)
     Route: 065
     Dates: end: 20250215

REACTIONS (6)
  - Cardiac arrest [Fatal]
  - Pneumonia [Fatal]
  - Hypertension [Recovered/Resolved]
  - Wrong technique in product usage process [Unknown]
  - Product use in unapproved indication [Unknown]
  - Inappropriate schedule of product administration [Unknown]
